FAERS Safety Report 26001393 (Version 2)
Quarter: 2025Q4

REPORT INFORMATION
  Report Type: Report from Study
  Country: US (occurrence: US)
  Receive Date: 20251105
  Receipt Date: 20251217
  Transmission Date: 20260118
  Serious: Yes (Other)
  Sender: PFIZER
  Company Number: US-PFIZER INC-202500216950

PATIENT
  Age: 56 Year
  Sex: Female

DRUGS (2)
  1. IBRANCE [Suspect]
     Active Substance: PALBOCICLIB
     Indication: Breast cancer female
     Dosage: 125 MG, CYCLIC (TK 125MG T PO ONCE D FOR 21 DAYS OF EACH CYCLE UTD)
     Route: 048
     Dates: start: 20251007
  2. IBRANCE [Suspect]
     Active Substance: PALBOCICLIB
     Dosage: TK 1 T (TAB) PO (PER ORAL) D (DAILY) FOR 21 DAYS OF 28 DAY CYCLE
     Route: 048
     Dates: start: 20251104

REACTIONS (3)
  - Infection [Unknown]
  - Nephrolithiasis [Unknown]
  - Vision blurred [Unknown]

NARRATIVE: CASE EVENT DATE: 20251001
